FAERS Safety Report 16710292 (Version 1)
Quarter: 2019Q3

REPORT INFORMATION
  Report Type: Report from Study
  Country: CO (occurrence: CO)
  Receive Date: 20190816
  Receipt Date: 20190816
  Transmission Date: 20191004
  Serious: Yes (Other)
  Sender: FDA-Public Use
  Company Number: CO-EMD SERONO-9110639

PATIENT
  Sex: Male

DRUGS (1)
  1. SAIZEN [Suspect]
     Active Substance: SOMATROPIN
     Indication: GROWTH HORMONE DEFICIENCY
     Dosage: 2.5 (UNSPECIFIED UNITS)
     Route: 058
     Dates: start: 20190405, end: 2019

REACTIONS (1)
  - Adenoma benign [Unknown]

NARRATIVE: CASE EVENT DATE: 2019
